FAERS Safety Report 10020975 (Version 1)
Quarter: 2014Q1

REPORT INFORMATION
  Report Type: Spontaneous
  Country: US (occurrence: US)
  Receive Date: 20140319
  Receipt Date: 20140319
  Transmission Date: 20141002
  Serious: Yes (Other)
  Sender: FDA-Public Use
  Company Number: US-JNJFOC-20140307344

PATIENT
  Age: 77 Year
  Sex: Female
  Weight: 89.36 kg

DRUGS (4)
  1. XARELTO [Suspect]
     Indication: PRODUCT USED FOR UNKNOWN INDICATION
     Route: 048
  2. INSPRA [Concomitant]
     Route: 065
  3. ACCUPRIL [Concomitant]
     Route: 065
  4. KEFLEX [Concomitant]
     Route: 065

REACTIONS (1)
  - Hallucination [Unknown]
